FAERS Safety Report 8345679-7 (Version None)
Quarter: 2012Q2

REPORT INFORMATION
  Report Type: 
  Country: None (occurrence: None)
  Receive Date: 20120508
  Receipt Date: 20120427
  Transmission Date: 20120825
  Serious: No
  Sender: FDA-Public Use
  Company Number: BR-ELI_LILLY_AND_COMPANY-BR201112004289

PATIENT
  Sex: Female

DRUGS (8)
  1. DISGREN [Concomitant]
     Dosage: UNK, UNKNOWN
     Route: 048
  2. ATENOLOL [Concomitant]
     Dosage: UNK, UNKNOWN
     Route: 048
  3. EFFIENT [Suspect]
     Indication: ANTIPLATELET THERAPY
     Dosage: 10 MG, QD
     Route: 048
     Dates: start: 20111117
  4. CALCIUM [Concomitant]
     Dosage: UNK, UNKNOWN
     Route: 065
  5. LOVAZA [Concomitant]
     Dosage: UNK, UNKNOWN
     Route: 048
  6. RANITIDINE [Concomitant]
     Dosage: UNK, UNKNOWN
     Route: 048
  7. SIMVASTATIN [Concomitant]
     Dosage: UNK, UNKNOWN
     Route: 048
  8. CAPTOPRIL [Concomitant]
     Dosage: UNK, UNKNOWN
     Route: 048

REACTIONS (4)
  - INFLUENZA [None]
  - COUGH [None]
  - HEADACHE [None]
  - PAIN [None]
